FAERS Safety Report 20114153 (Version 1)
Quarter: 2021Q4

REPORT INFORMATION
  Report Type: Report from Study
  Country: ES (occurrence: ES)
  Receive Date: 20211125
  Receipt Date: 20211125
  Transmission Date: 20220303
  Serious: Yes (Other)
  Sender: FDA-Public Use
  Company Number: ES-TEVA-2021-ES-1979948

PATIENT
  Age: 56 Year
  Sex: Female

DRUGS (3)
  1. FLUDARABINE [Suspect]
     Active Substance: FLUDARABINE PHOSPHATE
     Indication: Bone marrow conditioning regimen
     Dosage: 40 MG/M2 DAILY; SCHEDULED TO BE ADMINISTERED ON DAYS -6 TO -3
     Route: 065
  2. RITUXIMAB [Suspect]
     Active Substance: RITUXIMAB
     Indication: Bone marrow conditioning regimen
     Dosage: ONE DOSE; SCHEDULED TO BE ADMINISTERED WEEKLY STARTING FROM DAY -35
     Route: 065
  3. BUSULFAN [Suspect]
     Active Substance: BUSULFAN
     Indication: Bone marrow conditioning regimen
     Dosage: 3.2 MG/KG DAILY; SCHEDULED TO BE ADMINISTERED ON DAYS -6 TO -3
     Route: 042

REACTIONS (1)
  - Fungal infection [Unknown]
